FAERS Safety Report 5401486-6 (Version None)
Quarter: 2007Q3

REPORT INFORMATION
  Report Type: 
  Country: None (occurrence: None)
  Receive Date: 20070731
  Receipt Date: 20060821
  Transmission Date: 20080115
  Serious: No
  Sender: FDA-Public Use
  Company Number: A0617481A

PATIENT
  Age: 64 Year
  Sex: Female

DRUGS (3)
  1. DYAZIDE [Suspect]
     Dosage: 25MG PER DAY
     Route: 048
     Dates: start: 20060401, end: 20060811
  2. AMARYL [Concomitant]
  3. LIPITOR [Concomitant]

REACTIONS (1)
  - ALOPECIA [None]
